FAERS Safety Report 6234517-4 (Version None)
Quarter: 2009Q2

REPORT INFORMATION
  Report Type: 
  Country: None (occurrence: None)
  Receive Date: 20090618
  Receipt Date: 20090115
  Transmission Date: 20091009
  Serious: No
  Sender: FDA-Public Use
  Company Number: US-BRISTOL-MYERS SQUIBB COMPANY-14474217

PATIENT
  Age: 70 Year
  Sex: Male

DRUGS (1)
  1. SINEMET [Suspect]

REACTIONS (1)
  - DIZZINESS [None]
